FAERS Safety Report 5235863-3 (Version None)
Quarter: 2007Q1

REPORT INFORMATION
  Report Type: 
  Country: None (occurrence: None)
  Receive Date: 20070212
  Receipt Date: 20070201
  Transmission Date: 20070707
  Serious: Yes (Hospitalization)
  Sender: FDA-Public Use
  Company Number: US-JNJFOC-20070201237

PATIENT
  Age: 7 Decade
  Sex: Female

DRUGS (3)
  1. LEVAQUIN [Suspect]
     Indication: RESPIRATORY TRACT INFECTION
     Route: 048
  2. DIABETIC AGENTS [Suspect]
     Indication: DRUG USE FOR UNKNOWN INDICATION
     Route: 048
  3. BETA BLOCKER [Concomitant]
     Route: 065

REACTIONS (3)
  - CARDIO-RESPIRATORY ARREST [None]
  - HYPOGLYCAEMIA [None]
  - NEUROLOGICAL SYMPTOM [None]
